FAERS Safety Report 4270788-1 (Version None)
Quarter: 2004Q1

REPORT INFORMATION
  Report Type: 
  Country: None (occurrence: None)
  Receive Date: 20040114
  Receipt Date: 20030521
  Transmission Date: 20041129
  Serious: Yes (Hospitalization)
  Sender: FDA-Public Use
  Company Number: PL-BRISTOL-MYERS SQUIBB COMPANY-12281739

PATIENT
  Age: 51 Year
  Sex: Female

DRUGS (8)
  1. CISPLATIN [Suspect]
     Indication: NON-SMALL CELL LUNG CANCER METASTATIC
     Route: 042
     Dates: start: 20030415, end: 20030513
  2. PACLITAXEL [Suspect]
     Indication: NON-SMALL CELL LUNG CANCER METASTATIC
     Route: 042
     Dates: start: 20030415, end: 20030513
  3. NAPROXEN [Concomitant]
     Indication: CHEST PAIN
     Route: 048
     Dates: start: 20030404
  4. TRAMADOL HCL [Concomitant]
     Indication: CHEST PAIN
     Route: 048
     Dates: start: 20030404
  5. METOCLOPRAMIDE [Concomitant]
     Indication: PROPHYLAXIS
     Route: 048
     Dates: start: 20030404
  6. FAMOTIDINE [Concomitant]
     Indication: PROPHYLAXIS
     Route: 048
     Dates: start: 20030404
  7. MST CONTINUS [Concomitant]
     Route: 048
     Dates: start: 20030505
  8. KETOPROFEN [Concomitant]
     Route: 048
     Dates: start: 20030505

REACTIONS (5)
  - BONE PAIN [None]
  - MALIGNANT NEOPLASM PROGRESSION [None]
  - METASTASES TO BONE [None]
  - MYALGIA [None]
  - PNEUMONIA [None]
